FAERS Safety Report 5361339-9 (Version None)
Quarter: 2007Q2

REPORT INFORMATION
  Report Type: 
  Country: None (occurrence: None)
  Receive Date: 20070612
  Receipt Date: 20070601
  Transmission Date: 20071010
  Serious: Yes (Life-Threatening, Hospitalization)
  Sender: FDA-Public Use
  Company Number: 16740

PATIENT
  Age: 71 Year
  Sex: Female
  Weight: 96.6 kg

DRUGS (17)
  1. METHOTREXATE [Suspect]
     Indication: RHEUMATOID ARTHRITIS
     Dosage: 7.5 MG FREQ UNK PO
     Route: 048
     Dates: start: 20030228
  2. REMICADE [Suspect]
     Indication: RHEUMATOID ARTHRITIS
     Dosage: 3 MG/KG FREQ UNK IV
     Route: 042
     Dates: start: 20031112, end: 20070119
  3. ALENDRONIC ACID [Concomitant]
  4. ATORVASTATIN [Concomitant]
  5. DOCUSATE SODIUM [Concomitant]
  6. FELODIPINE [Concomitant]
  7. FOLIC ACID [Concomitant]
  8. INDAPAMIDE [Concomitant]
  9. LACRI-LUBE. MFR: NOT SPECIFIED [Concomitant]
  10. LATANOPROST [Concomitant]
  11. NABUMETONE [Concomitant]
  12. PARACETAMOL [Concomitant]
  13. PREDNISOLONE [Concomitant]
  14. RAMIPRIL [Concomitant]
  15. TOLTERODINE [Concomitant]
  16. TRAMADOL HCL [Concomitant]
  17. VISCOTEARS [Concomitant]

REACTIONS (1)
  - RENAL CELL CARCINOMA STAGE UNSPECIFIED [None]
